FAERS Safety Report 23028936 (Version 2)
Quarter: 2023Q4

REPORT INFORMATION
  Report Type: Report from Study
  Country: US (occurrence: US)
  Receive Date: 20231004
  Receipt Date: 20231006
  Transmission Date: 20240110
  Serious: Yes (Death, Hospitalization)
  Sender: FDA-Public Use
  Company Number: US-BAUSCH-BL-2023-014645

PATIENT
  Age: 72 Year
  Sex: Female

DRUGS (1)
  1. XIFAXAN [Suspect]
     Active Substance: RIFAXIMIN
     Indication: Product used for unknown indication
     Route: 048
     Dates: end: 202309

REACTIONS (3)
  - Primary biliary cholangitis [Fatal]
  - Malnutrition [Fatal]
  - Vomiting [Unknown]

NARRATIVE: CASE EVENT DATE: 20230101
